FAERS Safety Report 9825827 (Version 1)
Quarter: 2014Q1

REPORT INFORMATION
  Report Type: Report from Study
  Country: CA (occurrence: CA)
  Receive Date: 20140117
  Receipt Date: 20140117
  Transmission Date: 20141002
  Serious: Yes (Hospitalization)
  Sender: FDA-Public Use
  Company Number: CA-JNJFOC-20140105683

PATIENT
  Age: 61 Year
  Sex: Female
  Weight: 62.8 kg

DRUGS (4)
  1. REMICADE [Suspect]
     Indication: CROHN^S DISEASE
     Route: 042
     Dates: start: 20100726
  2. TYLENOL [Concomitant]
     Indication: ARTHRITIS
     Dosage: AS NECESSARY
  3. VITAMIN B12 [Concomitant]
     Route: 065
  4. NORMACOL STANDARD [Concomitant]
     Route: 065

REACTIONS (1)
  - Carpal tunnel syndrome [Recovered/Resolved]
